FAERS Safety Report 22295835 (Version 1)
Quarter: 2023Q2

REPORT INFORMATION
  Report Type: Spontaneous
  Country: US (occurrence: None)
  Receive Date: 20230507
  Receipt Date: 20230507
  Transmission Date: 20230722
  Serious: No
  Sender: FDA-Public Use
  Company Number: None

PATIENT
  Age: 53 Year
  Sex: Male
  Weight: 81.9 kg

DRUGS (3)
  1. COLGATE OPTIC WHITE - SPARKLING MINT [Suspect]
     Active Substance: SODIUM MONOFLUOROPHOSPHATE
     Indication: Tooth discolouration
     Dates: start: 20221114, end: 20221116
  2. MENTAL HEALTH MEDS [Concomitant]
  3. ASPIRIN [Concomitant]
     Active Substance: ASPIRIN

REACTIONS (3)
  - Application site haemorrhage [None]
  - Application site erythema [None]
  - Gingival bleeding [None]
